FAERS Safety Report 6569248-4 (Version None)
Quarter: 2010Q1

REPORT INFORMATION
  Report Type: 
  Country: None (occurrence: None)
  Receive Date: 20100201
  Receipt Date: 20100201
  Transmission Date: 20100710
  Serious: No
  Sender: FDA-Public Use
  Company Number: None

PATIENT
  Sex: Female

DRUGS (2)
  1. BUPROPION HCL [Suspect]
     Indication: BIPOLAR I DISORDER
     Dosage: 300MG ONCE PER DAY PO
     Route: 048
     Dates: start: 20090101, end: 20100115
  2. LAMOTRIGINE [Concomitant]

REACTIONS (6)
  - ALOPECIA [None]
  - HYPERHIDROSIS [None]
  - MENSTRUATION IRREGULAR [None]
  - PALPITATIONS [None]
  - SEBORRHOEA [None]
  - VISION BLURRED [None]
